FAERS Safety Report 21715375 (Version 1)
Quarter: 2022Q4

REPORT INFORMATION
  Report Type: Spontaneous
  Country: US (occurrence: None)
  Receive Date: 20221209
  Receipt Date: 20221209
  Transmission Date: 20230113
  Serious: Yes (Other)
  Sender: FDA-Public Use
  Company Number: None

PATIENT
  Age: 54 Year
  Sex: Male
  Weight: 103.5 kg

DRUGS (6)
  1. OXYCODONE [Suspect]
     Active Substance: OXYCODONE
     Indication: Pain
     Dates: start: 20221112, end: 20221112
  2. ATORVASTATIN [Concomitant]
     Active Substance: ATORVASTATIN
  3. JANUVIA [Concomitant]
     Active Substance: SITAGLIPTIN PHOSPHATE
  4. JARDIANCE [Concomitant]
     Active Substance: EMPAGLIFLOZIN
  5. TRULICITY [Concomitant]
     Active Substance: DULAGLUTIDE
  6. VITAMINS [Concomitant]
     Active Substance: VITAMINS

REACTIONS (5)
  - Swollen tongue [None]
  - Rash [None]
  - Headache [None]
  - Inadequate analgesia [None]
  - Product substitution issue [None]

NARRATIVE: CASE EVENT DATE: 20221112
